FAERS Safety Report 9007500 (Version 1)
Quarter: 2013Q1

REPORT INFORMATION
  Report Type: Spontaneous
  Country: US (occurrence: US)
  Receive Date: 20130111
  Receipt Date: 20130111
  Transmission Date: 20140127
  Serious: Yes (Death, Hospitalization)
  Sender: FDA-Public Use
  Company Number: US-MERCK-1301USA003341

PATIENT
  Age: 75 Year
  Sex: Male

DRUGS (6)
  1. SINGULAIR [Suspect]
     Dosage: 10MG, DAILY
     Route: 048
  2. DIGOXIN [Suspect]
     Dosage: 0.125MG, DAILY
     Route: 048
  3. VALSARTAN [Concomitant]
  4. AMOXICILLIN [Concomitant]
  5. ACETAMINOPHEN [Concomitant]
  6. ASPIRIN [Concomitant]

REACTIONS (6)
  - Cyanosis [Fatal]
  - Acute myocardial infarction [Fatal]
  - Hydronephrosis [Fatal]
  - Head injury [Fatal]
  - Haemorrhage [Fatal]
  - Feeling cold [Fatal]
